FAERS Safety Report 9892133 (Version 1)
Quarter: 2014Q1

REPORT INFORMATION
  Report Type: Report from Study
  Country: US (occurrence: US)
  Receive Date: 20140212
  Receipt Date: 20140212
  Transmission Date: 20141002
  Serious: Yes (Other)
  Sender: FDA-Public Use
  Company Number: US-ROCHE-1324650

PATIENT
  Sex: Female

DRUGS (3)
  1. AVASTIN [Suspect]
     Indication: OVARIAN CANCER
     Dosage: THERAPY START DATE: 16/MAY/2012, 30/MAY/2012, 14/JUN/2012, 28/JUN/2012, 11/JUL/2012
     Route: 042
  2. ABRAXANE [Concomitant]
     Indication: OVARIAN CANCER
     Route: 042
  3. HEPARIN [Concomitant]

REACTIONS (5)
  - Retroperitoneal cancer [Unknown]
  - Metastases to liver [Unknown]
  - Metastases to peritoneum [Unknown]
  - Dehydration [Unknown]
  - Off label use [Unknown]
